FAERS Safety Report 13034273 (Version 2)
Quarter: 2017Q1

REPORT INFORMATION
  Report Type: Spontaneous
  Country: US (occurrence: US)
  Receive Date: 20161216
  Receipt Date: 20170313
  Transmission Date: 20170428
  Serious: No
  Sender: FDA-Public Use
  Company Number: US-JNJFOC-20161124992

PATIENT
  Sex: Female

DRUGS (2)
  1. MENS ROGAINE EXTRA STRENGTH [Suspect]
     Active Substance: MINOXIDIL
     Indication: ANDROGENETIC ALOPECIA
     Route: 061
  2. MENS ROGAINE EXTRA STRENGTH [Suspect]
     Active Substance: MINOXIDIL
     Indication: ALOPECIA
     Route: 061

REACTIONS (8)
  - Incorrect product storage [Unknown]
  - Hair colour changes [Not Recovered/Not Resolved]
  - Product use issue [Unknown]
  - Product quality issue [Unknown]
  - Off label use [Unknown]
  - Product packaging issue [Unknown]
  - Overdose [Unknown]
  - Product formulation issue [Unknown]
